FAERS Safety Report 9848726 (Version 1)
Quarter: 2014Q1

REPORT INFORMATION
  Report Type: Spontaneous
  Country: US (occurrence: US)
  Receive Date: 20140128
  Receipt Date: 20140128
  Transmission Date: 20141002
  Serious: No
  Sender: FDA-Public Use
  Company Number: US-BAYER-2014-014159

PATIENT
  Age: 65 Year
  Sex: Female

DRUGS (1)
  1. ALEVE CAPLET [Suspect]
     Dosage: UNK UNK, QD
     Route: 048
     Dates: start: 201401

REACTIONS (1)
  - Insomnia [Not Recovered/Not Resolved]
